FAERS Safety Report 19845256 (Version 1)
Quarter: 2021Q3

REPORT INFORMATION
  Report Type: Spontaneous
  Country: US (occurrence: US)
  Receive Date: 20210917
  Receipt Date: 20210917
  Transmission Date: 20211014
  Serious: Yes (Death, Other)
  Sender: FDA-Public Use
  Company Number: US-BIOVITRUM-2021US8382

PATIENT
  Sex: Male

DRUGS (2)
  1. ZYDELIG [Concomitant]
     Active Substance: IDELALISIB
  2. DOPTELET [Suspect]
     Active Substance: AVATROMBOPAG MALEATE
     Indication: CHRONIC LYMPHOCYTIC LEUKAEMIA
     Dosage: UNKNOWN (FILLED FROM ANOTHER PHARMACY)
     Route: 048

REACTIONS (2)
  - Death [Fatal]
  - Off label use [Unknown]
